FAERS Safety Report 20326011 (Version 2)
Quarter: 2022Q1

REPORT INFORMATION
  Report Type: Spontaneous
  Country: US (occurrence: US)
  Receive Date: 20220112
  Receipt Date: 20220316
  Transmission Date: 20220423
  Serious: Yes (Other)
  Sender: FDA-Public Use
  Company Number: US-LUPIN PHARMACEUTICALS INC.-2021-26870

PATIENT
  Age: 72 Year
  Sex: Female

DRUGS (3)
  1. CLOBETASOL [Suspect]
     Active Substance: CLOBETASOL
     Indication: Pemphigoid
     Dosage: UNK (OINTEMENT)
     Route: 065
  2. DIPHENHYDRAMINE [Suspect]
     Active Substance: DIPHENHYDRAMINE
     Indication: Pemphigoid
     Dosage: UNK
     Route: 048
  3. PEMBROLIZUMAB [Concomitant]
     Active Substance: PEMBROLIZUMAB
     Indication: Metastatic malignant melanoma
     Dosage: 2 MILLIGRAM/KILOGRAM EVERY 3 WEEK
     Route: 065

REACTIONS (2)
  - Drug ineffective for unapproved indication [Unknown]
  - Off label use [Unknown]
